FAERS Safety Report 24712431 (Version 1)
Quarter: 2024Q4

REPORT INFORMATION
  Report Type: Spontaneous
  Country: CN (occurrence: CN)
  Receive Date: 20241209
  Receipt Date: 20241209
  Transmission Date: 20250115
  Serious: Yes (Hospitalization, Other)
  Sender: FRESENIUS KABI
  Company Number: CN-FreseniusKabi-FK202418107

PATIENT
  Age: 55 Year
  Sex: Male
  Weight: 70 kg

DRUGS (4)
  1. OMEGAVEN [Suspect]
     Active Substance: FISH OIL
     Indication: Malnutrition
     Dosage: FORM OF ADMIN.: INJECTION
     Route: 041
     Dates: start: 20241029, end: 20241111
  2. OMEGAVEN [Suspect]
     Active Substance: FISH OIL
     Indication: Nutritional supplementation
  3. OMEGAVEN [Suspect]
     Active Substance: FISH OIL
     Indication: Fasting
  4. OMEGAVEN [Suspect]
     Active Substance: FISH OIL
     Indication: Dehydration

REACTIONS (1)
  - Renal impairment [Recovering/Resolving]

NARRATIVE: CASE EVENT DATE: 20241030
